FAERS Safety Report 4499121-7 (Version None)
Quarter: 2004Q4

REPORT INFORMATION
  Report Type: 
  Country: None (occurrence: None)
  Receive Date: 20041111
  Receipt Date: 20041103
  Transmission Date: 20050328
  Serious: Yes (Other)
  Sender: FDA-Public Use
  Company Number: US-JNJFOC-20041101406

PATIENT
  Sex: Male

DRUGS (2)
  1. CONCERTA [Suspect]
     Route: 049
  2. CONCERTA [Suspect]
     Route: 049

REACTIONS (2)
  - BONE DEVELOPMENT ABNORMAL [None]
  - GROWTH RETARDATION [None]
